FAERS Safety Report 12608363 (Version 1)
Quarter: 2016Q3

REPORT INFORMATION
  Report Type: Other
  Country: US (occurrence: US)
  Receive Date: 20160729
  Receipt Date: 20160729
  Transmission Date: 20161109
  Serious: Yes (Other)
  Sender: FDA-Public Use
  Company Number: US-DEPOMED, INC.-US-2016DEP008265

PATIENT

DRUGS (3)
  1. SENNA                              /00142201/ [Concomitant]
     Active Substance: SENNA LEAF
     Indication: CONSTIPATION
     Dosage: DF, QD
     Route: 048
  2. LAZANDA [Suspect]
     Active Substance: FENTANYL CITRATE
     Indication: CANCER PAIN
     Dosage: EVERY TWO HOURS
     Route: 045
     Dates: start: 201512
  3. MOTRIN [Concomitant]
     Active Substance: IBUPROFEN
     Indication: PAIN
     Dosage: DF, PRN
     Route: 048

REACTIONS (6)
  - Prescribed overdose [Not Recovered/Not Resolved]
  - Product quality issue [Not Recovered/Not Resolved]
  - Frustration tolerance decreased [Not Recovered/Not Resolved]
  - Drug ineffective [Not Recovered/Not Resolved]
  - Nausea [Not Recovered/Not Resolved]
  - Vomiting [Not Recovered/Not Resolved]

NARRATIVE: CASE EVENT DATE: 201512
